FAERS Safety Report 8806229 (Version 2)
Quarter: 2012Q4

REPORT INFORMATION
  Report Type: Spontaneous
  Country: DE (occurrence: None)
  Receive Date: 20120919
  Receipt Date: 20121102
  Transmission Date: 20130627
  Serious: Yes (Death)
  Sender: FDA-Public Use
  Company Number: 2012033385

PATIENT
  Age: 84 Year
  Sex: Male

DRUGS (19)
  1. PRIVIGEN (IMMUNE GLOBULIN INTRAVENOUS (HUMAN) 10% LIQUID) [Suspect]
     Indication: IDIOPATHIC THROMBOCYTOPENIC PURPURA
     Route: 042
     Dates: start: 20101117, end: 20101117
  2. PRIVIGEN (IMMUNE GLOBULIN INTRAVENOUS (HUMAN) 10% LIQUID) [Suspect]
     Indication: IDIOPATHIC THROMBOCYTOPENIC PURPURA
     Route: 042
     Dates: start: 20101117, end: 20101117
  3. PRIVIGEN (IMMUNE GLOBULIN INTRAVENOUS (HUMAN) 10% LIQUID) [Suspect]
     Indication: IDIOPATHIC THROMBOCYTOPENIC PURPURA
     Route: 042
     Dates: start: 20101118, end: 20101118
  4. PRIVIGEN (IMMUNE GLOBULIN INTRAVENOUS (HUMAN) 10% LIQUID) [Suspect]
     Indication: IDIOPATHIC THROMBOCYTOPENIC PURPURA
     Route: 042
     Dates: start: 20101119, end: 20101119
  5. PRIVIGEN (IMMUNE GLOBULIN INTRAVENOUS (HUMAN) 10% LIQUID) [Suspect]
     Indication: IDIOPATHIC THROMBOCYTOPENIC PURPURA
     Route: 042
     Dates: start: 20101122, end: 20101122
  6. GLUCOCORTICOIDS(GLUCOCORTICOIDS) [Concomitant]
  7. PANTOPRAZOLE(PANTOPRAZOLE) [Concomitant]
  8. BENZODIAZEPINE DERIVATIVES(BENZODIAZEPINE DERIVATIVES) [Concomitant]
  9. FORMOTEROL(FORMOTEROL) [Concomitant]
  10. MICARDIS (TELMISARTAN) [Concomitant]
  11. TAMSULOSIN(TAMSULOSIN) [Concomitant]
  12. BECLOMETASONE(BECLOMETASONE) [Concomitant]
  13. PREDNISOLONE(PREDNISOLONE) [Concomitant]
  14. CO DIOVAN (CO-DIOVAN) [Concomitant]
  15. MOVICOL /01749801/(MOVICOL /01749801/) [Concomitant]
  16. MORPHIN (MORPHINE HYDROCHLORIDE) [Concomitant]
  17. SAB SIMPLEX /00159501/(DIMETICONE) [Concomitant]
  18. STILNOX /00914901/(ZOLPIDEM) [Concomitant]
  19. ZOPICLON (ZOPICLONE) [Concomitant]

REACTIONS (2)
  - Drug ineffective [None]
  - Infarction [None]
